FAERS Safety Report 8218092-0 (Version None)
Quarter: 2012Q1

REPORT INFORMATION
  Report Type: 
  Country: None (occurrence: None)
  Receive Date: 20120319
  Receipt Date: 20120301
  Transmission Date: 20120608
  Serious: Yes (Congenital Anomaly, Other)
  Sender: FDA-Public Use
  Company Number: FR-ABBOTT-12P-056-0910589-00

PATIENT
  Sex: Male

DRUGS (1)
  1. DEPAKENE [Suspect]
     Indication: MATERNAL EXPOSURE TIMING UNSPECIFIED
     Route: 064

REACTIONS (7)
  - FOETAL EXPOSURE DURING PREGNANCY [None]
  - MYOCLONUS [None]
  - SPEECH DISORDER DEVELOPMENTAL [None]
  - HYPOSPADIAS [None]
  - LEARNING DISORDER [None]
  - FOETAL ANTICONVULSANT SYNDROME [None]
  - DYSMORPHISM [None]
